FAERS Safety Report 4337833-6 (Version None)
Quarter: 2004Q2

REPORT INFORMATION
  Report Type: 
  Country: None (occurrence: None)
  Receive Date: 20040408
  Receipt Date: 20040329
  Transmission Date: 20050107
  Serious: Yes (Hospitalization)
  Sender: FDA-Public Use
  Company Number: ZONI001382

PATIENT
  Age: 26 Year
  Sex: Male

DRUGS (4)
  1. EXCEGRAN (ZONISAMIDE) [Suspect]
     Indication: CONVULSION
     Dosage: 300 MG DAILY ORAL
     Route: 048
     Dates: start: 19991231, end: 20000303
  2. PHENOBARBITAL TAB [Suspect]
     Indication: CONVULSION
     Dosage: 100 MG DAILY
     Dates: start: 19991231, end: 20000211
  3. NEUQUINON (UBIDECARENONE) [Concomitant]
  4. PHENYTOIN [Concomitant]

REACTIONS (13)
  - AEROPHAGIA [None]
  - ASTHENIA [None]
  - CONVERSION DISORDER [None]
  - DEPENDENT PERSONALITY DISORDER [None]
  - DRUG ABUSER [None]
  - FLIGHT OF IDEAS [None]
  - HYPERKINESIA [None]
  - HYPOMANIA [None]
  - LOGORRHOEA [None]
  - MANIA [None]
  - MUSCLE SPASMS [None]
  - SUICIDAL IDEATION [None]
  - SUICIDE ATTEMPT [None]
